FAERS Safety Report 4466122-4 (Version None)
Quarter: 2004Q3

REPORT INFORMATION
  Report Type: 
  Country: None (occurrence: None)
  Receive Date: 20040930
  Receipt Date: 20040914
  Transmission Date: 20050211
  Serious: Yes (Hospitalization, Disabling)
  Sender: FDA-Public Use
  Company Number: 2004233918FR

PATIENT
  Sex: Female

DRUGS (1)
  1. XALATAN [Suspect]
     Dosage: OPHTHALMIC
     Route: 047
     Dates: start: 20020101

REACTIONS (2)
  - MALIGNANT MELANOMA OF SITES OTHER THAN SKIN [None]
  - MALIGNANT NEOPLASM OF EYE [None]
